FAERS Safety Report 9477141 (Version 1)
Quarter: 2013Q3

REPORT INFORMATION
  Report Type: Spontaneous
  Country: US (occurrence: US)
  Receive Date: 20130826
  Receipt Date: 20130826
  Transmission Date: 20140515
  Serious: No
  Sender: FDA-Public Use
  Company Number: US-PFIZER INC-2013246293

PATIENT
  Sex: Female

DRUGS (2)
  1. CHANTIX [Suspect]
     Dosage: UNK, ONLY IN THE MORNING FOR THE FIRST WEEK
     Dates: start: 201308, end: 201308
  2. CHANTIX [Suspect]
     Dosage: BROKE VARENICLINE UNKNOWN DOSE IN HALF
     Dates: start: 201308

REACTIONS (2)
  - Abdominal discomfort [Unknown]
  - Decreased appetite [Unknown]
